FAERS Safety Report 16692793 (Version 3)
Quarter: 2019Q4

REPORT INFORMATION
  Report Type: Report from Study
  Country: US (occurrence: US)
  Receive Date: 20190812
  Receipt Date: 20191209
  Transmission Date: 20200122
  Serious: Yes (Death, Hospitalization, Other)
  Sender: FDA-Public Use
  Company Number: US-ROCHE-2373136

PATIENT
  Sex: Female

DRUGS (25)
  1. OXYCODONE [Concomitant]
     Active Substance: OXYCODONE
  2. MORPHINE [Concomitant]
     Active Substance: MORPHINE
     Indication: PAIN
  3. SOLU-MEDROL [Concomitant]
     Active Substance: METHYLPREDNISOLONE SODIUM SUCCINATE
     Route: 065
  4. ERIBULIN [Suspect]
     Active Substance: ERIBULIN
     Indication: INFLAMMATORY CARCINOMA OF THE BREAST
     Dosage: DAY 1 AND 8 OF 21 DAY CYCLE
     Route: 042
     Dates: start: 20190710
  5. CYCLOBENZAPRINE. [Concomitant]
     Active Substance: CYCLOBENZAPRINE
  6. ATEZOLIZUMAB. [Suspect]
     Active Substance: ATEZOLIZUMAB
     Indication: INFLAMMATORY CARCINOMA OF THE BREAST
     Route: 042
     Dates: start: 20190718
  7. COBIMETINIB. [Suspect]
     Active Substance: COBIMETINIB
     Indication: INFLAMMATORY CARCINOMA OF THE BREAST
     Route: 048
     Dates: start: 20190710
  8. VANCOMYCIN [Concomitant]
     Active Substance: VANCOMYCIN
     Indication: URINARY TRACT INFECTION
  9. DIPHENOXYLATE/ATROPINE [Concomitant]
     Active Substance: ATROPINE\DIPHENOXYLATE
  10. FENTANYL TRANSDERMAL SYSTEM [Concomitant]
     Active Substance: FENTANYL
  11. LIDOCAINE;PRILOCAINE [Concomitant]
  12. CHOLESTYRAMINE. [Concomitant]
     Active Substance: CHOLESTYRAMINE
  13. AMPHETAMINE [Concomitant]
     Active Substance: AMPHETAMINE
  14. POLYETHYLENE GLYCOL [Concomitant]
     Active Substance: POLYETHYLENE GLYCOLS
  15. PREDNISONE. [Concomitant]
     Active Substance: PREDNISONE
  16. CEFTRIAXONE. [Concomitant]
     Active Substance: CEFTRIAXONE
     Indication: URINARY TRACT INFECTION
  17. AZITHROMYCIN ANHYDROUS. [Concomitant]
     Active Substance: AZITHROMYCIN ANHYDROUS
  18. OXYGEN. [Concomitant]
     Active Substance: OXYGEN
  19. ALBUTEROL [SALBUTAMOL] [Concomitant]
     Active Substance: ALBUTEROL
  20. ASPIRIN [ACETYLSALICYLIC ACID] [Concomitant]
     Active Substance: ASPIRIN
  21. DEXTROAMPHETAMINE [DEXAMFETAMINE] [Concomitant]
     Active Substance: DEXTROAMPHETAMINE
  22. ESCITALOPRAM [Concomitant]
     Active Substance: ESCITALOPRAM OXALATE
  23. SENNA [Concomitant]
     Active Substance: SENNA LEAF\SENNOSIDES\SENNOSIDES A AND B
  24. ZOLPIDEM [Concomitant]
     Active Substance: ZOLPIDEM TARTRATE
  25. CEFEPIME [Concomitant]
     Active Substance: CEFEPIME HYDROCHLORIDE

REACTIONS (5)
  - Sepsis [Unknown]
  - Pneumonia [Recovered/Resolved]
  - Pneumonitis [Not Recovered/Not Resolved]
  - Respiratory failure [Not Recovered/Not Resolved]
  - Abdominal pain [Not Recovered/Not Resolved]

NARRATIVE: CASE EVENT DATE: 20190719
